FAERS Safety Report 25944513 (Version 1)
Quarter: 2025Q4

REPORT INFORMATION
  Report Type: Spontaneous
  Country: EU (occurrence: EU)
  Receive Date: 20251021
  Receipt Date: 20251021
  Transmission Date: 20260118
  Serious: Yes (Other)
  Sender: Harrow Health
  Company Number: EU-HARROW-HAR-2025-HR-01269

PATIENT
  Age: 61 Year
  Sex: Female

DRUGS (11)
  1. MAXIDEX [Suspect]
     Active Substance: DEXAMETHASONE
     Indication: Herpes simplex
     Dosage: EYE DROPS; REGIMEN #1
  2. MAXIDEX [Suspect]
     Active Substance: DEXAMETHASONE
     Indication: Iridocyclitis
  3. MAXIDEX [Suspect]
     Active Substance: DEXAMETHASONE
     Indication: Iridocyclitis
  4. MAXIDEX [Suspect]
     Active Substance: DEXAMETHASONE
     Indication: Iridocyclitis
  5. MAXIDEX [Suspect]
     Active Substance: DEXAMETHASONE
     Dosage: EYE OINTMENT; REGIMEN 1
  6. MAXIDEX [Suspect]
     Active Substance: DEXAMETHASONE
     Dosage: REGIMEN #1
     Route: 057
  7. MAXIDEX [Suspect]
     Active Substance: DEXAMETHASONE
     Dosage: REGIMEN #1
     Route: 061
  8. ACYCLOVIR [Concomitant]
     Active Substance: ACYCLOVIR
  9. TROPICAMIDE [Concomitant]
     Active Substance: TROPICAMIDE
  10. IBUPROFEN [Concomitant]
     Active Substance: IBUPROFEN
  11. DORZOLAMIDE\TIMOLOL [Concomitant]
     Active Substance: DORZOLAMIDE\TIMOLOL

REACTIONS (5)
  - Ophthalmic herpes simplex [Unknown]
  - Disease progression [Unknown]
  - Intraocular pressure increased [Unknown]
  - Iris transillumination defect [Recovering/Resolving]
  - Mydriasis [Unknown]
